FAERS Safety Report 4733109-3 (Version None)
Quarter: 2005Q3

REPORT INFORMATION
  Report Type: 
  Country: None (occurrence: None)
  Receive Date: 20050729
  Receipt Date: 20050720
  Transmission Date: 20060218
  Serious: Yes (Other)
  Sender: FDA-Public Use
  Company Number: GBWYE807007JUL05

PATIENT

DRUGS (2)
  1. GEMTUZUMAB OZOGAMICIN (GEMTUZUMAB OZOGAMICIN, INJECTION) [Suspect]
  2. NOVANTRONE [Suspect]

REACTIONS (1)
  - CONGESTIVE CARDIOMYOPATHY [None]
